FAERS Safety Report 7268541-X (Version None)
Quarter: 2011Q1

REPORT INFORMATION
  Report Type: 
  Country: None (occurrence: None)
  Receive Date: 20110201
  Receipt Date: 20110120
  Transmission Date: 20110831
  Serious: Yes (Hospitalization)
  Sender: FDA-Public Use
  Company Number: BR-JNJFOC-20110104056

PATIENT
  Sex: Male
  Weight: 103.7 kg

DRUGS (10)
  1. ACETYLSALICYLIC ACID SRT [Concomitant]
  2. IBUPROFEN [Suspect]
     Indication: OSTEOARTHRITIS
     Route: 048
  3. ENALAPRIL MALEATE [Concomitant]
  4. AMLODIPINE [Concomitant]
  5. AMITRIPTYLINE HCL [Concomitant]
  6. METFORMIN HCL [Concomitant]
  7. NEXIUM [Concomitant]
     Indication: GASTROINTESTINAL DISORDER THERAPY
     Dosage: 20 OR 40MG/DAY
  8. HYDROCHLOROTHIAZIDE [Concomitant]
  9. ATENOLOL [Concomitant]
  10. SIMVASTATIN [Concomitant]

REACTIONS (1)
  - ATRIOVENTRICULAR BLOCK SECOND DEGREE [None]
